FAERS Safety Report 26160158 (Version 1)
Quarter: 2025Q4

REPORT INFORMATION
  Report Type: Spontaneous
  Country: EU (occurrence: None)
  Receive Date: 20251216
  Receipt Date: 20251216
  Transmission Date: 20260117
  Serious: Yes (Disabling, Other)
  Sender: AUROBINDO
  Company Number: EU-LRB-01100295

PATIENT
  Age: 50 Year
  Sex: Female
  Weight: 69 kg

DRUGS (1)
  1. CITALOPRAM HYDROBROMIDE [Suspect]
     Active Substance: CITALOPRAM HYDROBROMIDE
     Indication: Depression
     Dosage: 10 MILLIGRAM
     Route: 061

REACTIONS (1)
  - Pulmonary hypertension [Not Recovered/Not Resolved]
